FAERS Safety Report 5721822-0 (Version None)
Quarter: 2008Q2

REPORT INFORMATION
  Report Type: 
  Country: None (occurrence: None)
  Receive Date: 20080429
  Receipt Date: 20070507
  Transmission Date: 20081010
  Serious: No
  Sender: FDA-Public Use
  Company Number: US-ASTRAZENECA-2007UW10668

PATIENT
  Age: 67 Year
  Sex: Female
  Weight: 69.9 kg

DRUGS (3)
  1. NEXIUM [Suspect]
     Indication: PHARYNGOLARYNGEAL PAIN
     Route: 048
     Dates: start: 20070316
  2. NEXIUM [Suspect]
     Indication: GASTROOESOPHAGEAL REFLUX DISEASE
     Route: 048
     Dates: start: 20070316
  3. ZELNORM [Concomitant]
     Dates: start: 20070318, end: 20070101

REACTIONS (3)
  - ABDOMINAL PAIN UPPER [None]
  - STOMATITIS [None]
  - TONGUE DISCOLOURATION [None]
